FAERS Safety Report 8072137-X (Version None)
Quarter: 2012Q1

REPORT INFORMATION
  Report Type: 
  Country: None (occurrence: None)
  Receive Date: 20120124
  Receipt Date: 20120124
  Transmission Date: 20120608
  Serious: Yes (Other)
  Sender: FDA-Public Use
  Company Number: None

PATIENT
  Age: 55 Year
  Sex: Male
  Weight: 80.6 kg

DRUGS (2)
  1. AMIODARONE HCL [Suspect]
     Dosage: 200 MG BID PO
     Route: 048
     Dates: start: 20120108, end: 20120115
  2. SILDENAFIL [Suspect]
     Dosage: 25 MG TID PO
     Route: 048
     Dates: start: 20120106

REACTIONS (14)
  - PERICARDIAL EFFUSION [None]
  - ISCHAEMIA [None]
  - OEDEMA PERIPHERAL [None]
  - HYPOTENSION [None]
  - HYPOXIA [None]
  - DEHYDRATION [None]
  - LIVER FUNCTION TEST ABNORMAL [None]
  - TOXICITY TO VARIOUS AGENTS [None]
  - INTERNATIONAL NORMALISED RATIO INCREASED [None]
  - LIVER INJURY [None]
  - ATRIAL FLUTTER [None]
  - PULMONARY FIBROSIS [None]
  - ATRIOVENTRICULAR BLOCK FIRST DEGREE [None]
  - HYPONATRAEMIA [None]
